FAERS Safety Report 26025382 (Version 1)
Quarter: 2025Q4

REPORT INFORMATION
  Report Type: Report from Study
  Country: CA (occurrence: CA)
  Receive Date: 20251111
  Receipt Date: 20251111
  Transmission Date: 20260118
  Serious: Yes (Hospitalization, Other)
  Sender: ALEXION PHARMACEUTICALS
  Company Number: CA-AstraZeneca-CH-00986597A

PATIENT
  Sex: Female

DRUGS (3)
  1. ANIFROLUMAB [Suspect]
     Active Substance: ANIFROLUMAB
     Indication: Autoantibody positive
     Dates: start: 20250923
  2. ANIFROLUMAB [Suspect]
     Active Substance: ANIFROLUMAB
     Indication: Systemic lupus erythematosus
  3. VITAMIN K [Concomitant]
     Active Substance: PHYTONADIONE
     Route: 065

REACTIONS (8)
  - Abdominal tenderness [Unknown]
  - Internal haemorrhage [Unknown]
  - Vascular fragility [Unknown]
  - Arterial rupture [Unknown]
  - Contusion [Unknown]
  - Chronic obstructive pulmonary disease [Not Recovered/Not Resolved]
  - Haematoma [Unknown]
  - International normalised ratio decreased [Unknown]
